FAERS Safety Report 22029025 (Version 1)
Quarter: 2023Q1

REPORT INFORMATION
  Report Type: Spontaneous
  Country: US (occurrence: US)
  Receive Date: 20230223
  Receipt Date: 20230223
  Transmission Date: 20230418
  Serious: Yes (Other)
  Sender: FDA-Public Use
  Company Number: US-TEVA-2023-US-2857397

PATIENT
  Age: 16 Year
  Sex: Male

DRUGS (3)
  1. FLUDARABINE [Suspect]
     Active Substance: FLUDARABINE PHOSPHATE
     Indication: Bone marrow conditioning regimen
     Route: 065
  2. ACYCLOVIR [Concomitant]
     Active Substance: ACYCLOVIR
     Indication: Cytomegalovirus infection
     Route: 065
  3. ACYCLOVIR [Concomitant]
     Active Substance: ACYCLOVIR
     Indication: Prophylaxis

REACTIONS (1)
  - Cytomegalovirus infection [Unknown]
